FAERS Safety Report 7693292-7 (Version None)
Quarter: 2011Q3

REPORT INFORMATION
  Report Type: 
  Country: None (occurrence: None)
  Receive Date: 20110819
  Receipt Date: 20110810
  Transmission Date: 20111222
  Serious: Yes (Other)
  Sender: FDA-Public Use
  Company Number: PHEH2010US00483

PATIENT
  Sex: Female

DRUGS (7)
  1. MORPHINE [Concomitant]
  2. METFORMIN [Concomitant]
  3. LOPRESSOR [Concomitant]
  4. AMBIEN [Concomitant]
  5. DEMEROL [Concomitant]
  6. ZOMETA [Suspect]
  7. ASPIRIN [Concomitant]

REACTIONS (12)
  - OSTEONECROSIS OF JAW [None]
  - BREAST CANCER METASTATIC [None]
  - DIZZINESS [None]
  - PAIN [None]
  - ANXIETY [None]
  - GENERAL PHYSICAL HEALTH DETERIORATION [None]
  - AXILLARY MASS [None]
  - DIABETES MELLITUS [None]
  - HYPERTENSION [None]
  - SUBCUTANEOUS ABSCESS [None]
  - DECREASED INTEREST [None]
  - IMPAIRED HEALING [None]
